FAERS Safety Report 9704844 (Version 2)
Quarter: 2016Q1

REPORT INFORMATION
  Report Type: Spontaneous
  Country: DE (occurrence: DE)
  Receive Date: 20131122
  Receipt Date: 20160205
  Transmission Date: 20160526
  Serious: Yes (Congenital Anomaly, Other)
  Sender: FDA-Public Use
  Company Number: DE-BRISTOL-MYERS SQUIBB COMPANY-19808682

PATIENT
  Age: 1 Day
  Sex: Male
  Weight: 2.1 kg

DRUGS (1)
  1. METFORMIN HYDROCHLORIDE. [Suspect]
     Active Substance: METFORMIN HYDROCHLORIDE
     Indication: PRODUCT USED FOR UNKNOWN INDICATION
     Dosage: 500 MG, TID
     Route: 064

REACTIONS (8)
  - Hypospadias [Recovered/Resolved with Sequelae]
  - Atrial septal defect [Unknown]
  - Adactyly [Not Recovered/Not Resolved]
  - Coordination abnormal [Unknown]
  - Urethral valves [Recovered/Resolved with Sequelae]
  - Developmental delay [Not Recovered/Not Resolved]
  - Premature baby [Unknown]
  - Foetal exposure during pregnancy [Recovered/Resolved]

NARRATIVE: CASE EVENT DATE: 20070130
